FAERS Safety Report 7489338-1 (Version None)
Quarter: 2011Q2

REPORT INFORMATION
  Report Type: 
  Country: None (occurrence: None)
  Receive Date: 20110518
  Receipt Date: 20110505
  Transmission Date: 20111010
  Serious: Yes (Other)
  Sender: FDA-Public Use
  Company Number: US-ELI_LILLY_AND_COMPANY-US201105003059

PATIENT
  Age: 64 Year
  Sex: Female

DRUGS (24)
  1. METHADONE HCL [Concomitant]
     Dosage: UNK
     Route: 065
  2. SIMCOR [Concomitant]
     Dosage: UNK
     Route: 065
  3. FORTEO [Suspect]
     Indication: OSTEOPOROSIS
     Dosage: UNK
     Route: 065
  4. XANAX [Concomitant]
     Dosage: UNK
     Route: 065
  5. OXYCODONE HCL [Concomitant]
     Dosage: UNK
     Route: 065
  6. LEVOTHYROXINE SODIUM [Concomitant]
     Dosage: UNK
     Route: 065
  7. FISH OIL [Concomitant]
     Dosage: UNK
     Route: 065
  8. LUNESTA [Concomitant]
     Dosage: UNK
     Route: 065
  9. PROMETHAZINE [Concomitant]
     Dosage: UNK
     Route: 065
  10. CITRACAL [Concomitant]
     Dosage: UNK
     Route: 065
  11. NEXIUM [Concomitant]
     Dosage: UNK
     Route: 065
  12. FORTEO [Suspect]
     Dosage: 20 UG, QD
     Route: 065
     Dates: start: 20110502
  13. ASPIRIN [Concomitant]
     Dosage: UNK
     Route: 065
  14. FOLIC ACID [Concomitant]
     Dosage: UNK
     Route: 065
  15. VERPAMIL HCL [Concomitant]
     Dosage: UNK
     Route: 065
  16. VITAMIN B [Concomitant]
     Dosage: UNK
     Route: 065
  17. SOMA [Concomitant]
     Dosage: UNK
     Route: 065
  18. PRASTERONE [Concomitant]
     Dosage: UNK
     Route: 065
  19. PREDNISONE [Concomitant]
     Dosage: UNK
     Route: 065
  20. CENTRUM SILVER [Concomitant]
     Dosage: UNK
     Route: 065
  21. CITALOPRAM [Concomitant]
     Dosage: UNK
     Route: 065
  22. BENICAR [Concomitant]
     Dosage: UNK
     Route: 065
  23. MIRALAX [Concomitant]
     Dosage: UNK
     Route: 065
  24. TRAZODONE HCL [Concomitant]
     Dosage: UNK
     Route: 065

REACTIONS (3)
  - SURGERY [None]
  - ORAL PAIN [None]
  - PAIN [None]
